FAERS Safety Report 10165756 (Version 1)
Quarter: 2014Q2

REPORT INFORMATION
  Report Type: Spontaneous
  Country: US (occurrence: US)
  Receive Date: 20140510
  Receipt Date: 20140510
  Transmission Date: 20141212
  Serious: Yes (Hospitalization)
  Sender: FDA-Public Use
  Company Number: US-BRISTOL-MYERS SQUIBB COMPANY-19926401

PATIENT
  Sex: Female

DRUGS (3)
  1. BYDUREON [Suspect]
     Indication: TYPE 2 DIABETES MELLITUS
  2. GLUCOVANCE [Suspect]
     Indication: TYPE 2 DIABETES MELLITUS
  3. LANTUS [Suspect]
     Indication: TYPE 2 DIABETES MELLITUS

REACTIONS (2)
  - Blood glucose decreased [Unknown]
  - Weight decreased [Unknown]
